FAERS Safety Report 17807892 (Version 1)
Quarter: 2020Q2

REPORT INFORMATION
  Report Type: Spontaneous
  Country: GB (occurrence: GB)
  Receive Date: 20200520
  Receipt Date: 20200520
  Transmission Date: 20200714
  Serious: Yes (Life-Threatening, Hospitalization)
  Sender: FDA-Public Use
  Company Number: GB-PFIZER INC-2020198659

PATIENT
  Age: 48 Year
  Sex: Male
  Weight: 97 kg

DRUGS (7)
  1. ESOMEPRAZOLE. [Concomitant]
     Active Substance: ESOMEPRAZOLE MAGNESIUM
     Dosage: UNK
  2. LOSARTAN. [Concomitant]
     Active Substance: LOSARTAN
     Dosage: UNK
  3. VARENICLINE TARTRATE [Suspect]
     Active Substance: VARENICLINE TARTRATE
     Dosage: 2 MG, 1X/DAY (500MCG ONCE DAILY FOR THREE DAYS THEN TWICE DAILY FOR 4 DAYS THEN 1MG TWICE DAILY)
     Route: 048
     Dates: end: 20200424
  4. FELODIPINE. [Concomitant]
     Active Substance: FELODIPINE
     Dosage: UNK
  5. VARENICLINE TARTRATE [Suspect]
     Active Substance: VARENICLINE TARTRATE
     Dosage: 500 UG, 1X/DAY (500MCG ONCE DAILY FOR THREE DAYS THEN TWICE DAILY FOR 4 DAYS THEN 1MG TWICE DAILY)
     Route: 048
     Dates: start: 20200414
  6. VARENICLINE TARTRATE [Suspect]
     Active Substance: VARENICLINE TARTRATE
     Indication: SMOKING CESSATION THERAPY
     Dosage: 1000 UG, 1X/DAY (500MCG ONCE DAILY FOR THREE DAYS THEN TWICE DAILY FOR 4 DAYS THEN 1MG TWICE DAILY)
     Route: 048
  7. PARACETAMOL [Concomitant]
     Active Substance: ACETAMINOPHEN
     Dosage: UNK

REACTIONS (1)
  - Suicide attempt [Recovering/Resolving]

NARRATIVE: CASE EVENT DATE: 20200424
